FAERS Safety Report 4643817-0 (Version None)
Quarter: 2005Q2

REPORT INFORMATION
  Report Type: 
  Country: None (occurrence: None)
  Receive Date: 20050422
  Receipt Date: 20050422
  Transmission Date: 20051028
  Serious: Yes (Other)
  Sender: FDA-Public Use
  Company Number: None

PATIENT
  Age: 71 Year
  Sex: Female
  Weight: 54 kg

DRUGS (12)
  1. OMEPRAZOLE [Suspect]
  2. FOLIC ACID [Concomitant]
  3. RABEPRAZOLE NA [Concomitant]
  4. PREDNISONE TAB [Concomitant]
  5. METHOTREXATE NA [Concomitant]
  6. RISEDRONATE NA [Concomitant]
  7. FLUTICASONE PROP [Concomitant]
  8. SYNTHROID [Concomitant]
  9. BUSPIRONE HCL [Concomitant]
  10. CHLORDIAZEPOXIDE HCL [Concomitant]
  11. OMEPRAZOLE [Concomitant]
  12. HYDROCODONE 5/ACETAMINOPHEN [Concomitant]

REACTIONS (1)
  - DIARRHOEA [None]
